FAERS Safety Report 23642327 (Version 1)
Quarter: 2024Q1

REPORT INFORMATION
  Report Type: Spontaneous
  Country: US (occurrence: US)
  Receive Date: 20240318
  Receipt Date: 20240318
  Transmission Date: 20240410
  Serious: Yes (Other)
  Sender: FDA-Public Use
  Company Number: US-STRIDES ARCOLAB LIMITED-2024SP001036

PATIENT
  Sex: Male

DRUGS (2)
  1. MYCOPHENOLATE MOFETIL [Suspect]
     Active Substance: MYCOPHENOLATE MOFETIL
     Indication: Renal transplant
     Dosage: UNK (CAPSULE) 06 IN THE MORNING AND 06 IN THE EVENING
     Route: 048
     Dates: start: 20020128
  2. MYCOPHENOLATE MOFETIL [Suspect]
     Active Substance: MYCOPHENOLATE MOFETIL
     Dosage: UNK (DOSE WAS REDUCED TO 02 CAPSULES A DAY, HENCE PATIENT WAS TAKING 01 CAPSULE IN THE MORNING AND 0
     Route: 048
     Dates: start: 20020128

REACTIONS (8)
  - Neoplasm malignant [Unknown]
  - Muscle atrophy [Unknown]
  - Anaemia [Unknown]
  - Swelling [Unknown]
  - Constipation [Unknown]
  - White blood cell count decreased [Unknown]
  - Hypertension [Unknown]
  - Weight decreased [Unknown]
